FAERS Safety Report 8453021-6 (Version None)
Quarter: 2012Q2

REPORT INFORMATION
  Report Type: 
  Country: None (occurrence: None)
  Receive Date: 20120620
  Receipt Date: 20120504
  Transmission Date: 20120825
  Serious: No
  Sender: FDA-Public Use
  Company Number: US-VERTEX PHARMACEUTICALS INC.-AE-2012-006486

PATIENT
  Sex: Female
  Weight: 75.364 kg

DRUGS (6)
  1. DIAZIDE [Concomitant]
     Indication: HYPERTENSION
     Route: 048
  2. DETROL [Concomitant]
     Indication: URINARY INCONTINENCE
     Route: 048
  3. RIBAVIRIN [Concomitant]
     Indication: HEPATITIS C
     Route: 048
     Dates: start: 20120420
  4. INCIVEK [Suspect]
     Indication: HEPATITIS C
     Route: 048
     Dates: start: 20120420
  5. PEGASYS [Concomitant]
     Indication: HEPATITIS C
     Route: 058
     Dates: start: 20120420
  6. DIOVAN [Concomitant]
     Indication: HYPERTENSION
     Route: 048

REACTIONS (6)
  - INSOMNIA [None]
  - PAIN [None]
  - DIARRHOEA [None]
  - FATIGUE [None]
  - NAUSEA [None]
  - PYREXIA [None]
